FAERS Safety Report 6025578-6 (Version None)
Quarter: 2008Q4

REPORT INFORMATION
  Report Type: 
  Country: None (occurrence: None)
  Receive Date: 20081231
  Receipt Date: 20081226
  Transmission Date: 20090506
  Serious: Yes (Other)
  Sender: FDA-Public Use
  Company Number: US-ABBOTT-08P-163-0495010-00

PATIENT
  Sex: Male
  Weight: 81.72 kg

DRUGS (3)
  1. LUPRON DEPOT [Suspect]
     Indication: PROSTATE CANCER
     Route: 030
     Dates: start: 20080101
  2. COUMADIN [Concomitant]
     Indication: CARDIAC DISORDER
  3. HEART MEDICATIONS [Concomitant]
     Indication: CARDIAC DISORDER

REACTIONS (7)
  - ARTHRALGIA [None]
  - ARTHRITIS [None]
  - DIZZINESS [None]
  - HYPERTHYROIDISM [None]
  - METASTASES TO BONE [None]
  - PAIN IN EXTREMITY [None]
  - PROSTATIC SPECIFIC ANTIGEN INCREASED [None]
